FAERS Safety Report 7008924-6 (Version None)
Quarter: 2010Q3

REPORT INFORMATION
  Report Type: 
  Country: None (occurrence: None)
  Receive Date: 20100923
  Receipt Date: 20100913
  Transmission Date: 20110219
  Serious: Yes (Other)
  Sender: FDA-Public Use
  Company Number: US-JNJFOC-20100703862

PATIENT
  Sex: Male
  Weight: 95.26 kg

DRUGS (6)
  1. REMICADE [Suspect]
     Indication: CROHN'S DISEASE
     Route: 042
  2. PREDNISONE [Concomitant]
  3. IMURAN [Concomitant]
  4. CAPOTEN [Concomitant]
     Indication: BLOOD PRESSURE
  5. PENTASA [Concomitant]
  6. LEVOXYL [Concomitant]
     Indication: THYROID DISORDER

REACTIONS (7)
  - ANAPHYLACTIC REACTION [None]
  - DRUG HYPERSENSITIVITY [None]
  - HYPERSENSITIVITY [None]
  - INFUSION RELATED REACTION [None]
  - LOSS OF CONSCIOUSNESS [None]
  - MALAISE [None]
  - SMALL INTESTINAL STENOSIS [None]
